FAERS Safety Report 22598136 (Version 2)
Quarter: 2024Q2

REPORT INFORMATION
  Report Type: Spontaneous
  Country: US (occurrence: None)
  Receive Date: 20230614
  Receipt Date: 20240613
  Transmission Date: 20240716
  Serious: No
  Sender: FDA-Public Use
  Company Number: US-MDD US Operations-MDD202111-002302

PATIENT
  Age: 66 Year
  Sex: Male
  Weight: 85.72 kg

DRUGS (7)
  1. APOKYN [Suspect]
     Active Substance: APOMORPHINE HYDROCHLORIDE
     Indication: Parkinson^s disease
     Route: 058
  2. APOKYN [Suspect]
     Active Substance: APOMORPHINE HYDROCHLORIDE
     Dosage: UPTO 0.4 ML
     Route: 058
  3. APOKYN [Suspect]
     Active Substance: APOMORPHINE HYDROCHLORIDE
     Dosage: UPTO 0.3 ML
     Route: 058
  4. APOKYN [Suspect]
     Active Substance: APOMORPHINE HYDROCHLORIDE
     Route: 058
     Dates: start: 20201223
  5. SEROQUEL [Suspect]
     Active Substance: QUETIAPINE FUMARATE
     Indication: Product used for unknown indication
     Dates: start: 2021
  6. MYOBLOC [Concomitant]
     Active Substance: RIMABOTULINUMTOXINB
     Dosage: NOT PROVIDED
  7. CLONIDINE [Concomitant]
     Active Substance: CLONIDINE
     Dosage: NOT PROVIDED

REACTIONS (4)
  - Blood pressure increased [Unknown]
  - Device malfunction [Unknown]
  - Extra dose administered [Unknown]
  - Aggression [Recovered/Resolved]

NARRATIVE: CASE EVENT DATE: 20210101
